FAERS Safety Report 13871377 (Version 2)
Quarter: 2017Q3

REPORT INFORMATION
  Report Type: Spontaneous
  Country: US (occurrence: US)
  Receive Date: 20170816
  Receipt Date: 20170911
  Transmission Date: 20171127
  Serious: No
  Sender: FDA-Public Use
  Company Number: US-TEVA-796107USA

PATIENT
  Sex: Female
  Weight: 135 kg

DRUGS (2)
  1. QVAR [Suspect]
     Active Substance: BECLOMETHASONE DIPROPIONATE
     Indication: ASTHMA
     Dosage: TWO PUFFS IN THE MORNING AND EVENING
     Dates: start: 2009
  2. QVAR [Suspect]
     Active Substance: BECLOMETHASONE DIPROPIONATE
     Indication: HYPERSENSITIVITY
     Dosage: 80 MICROGRAM DAILY;

REACTIONS (5)
  - Dry mouth [Unknown]
  - Oropharyngeal plaque [Unknown]
  - Tooth disorder [Unknown]
  - Dental caries [Not Recovered/Not Resolved]
  - Product use in unapproved indication [Unknown]

NARRATIVE: CASE EVENT DATE: 2016
